FAERS Safety Report 13575914 (Version 1)
Quarter: 2017Q2

REPORT INFORMATION
  Report Type: Spontaneous
  Country: US (occurrence: US)
  Receive Date: 20170524
  Receipt Date: 20170524
  Transmission Date: 20170830
  Serious: Yes (Hospitalization, Other)
  Sender: FDA-Public Use
  Company Number: US-ZYDUS-015196

PATIENT
  Age: 17 Year
  Sex: Male

DRUGS (4)
  1. CAFFEINE/CAFFEINE CITRATE [Concomitant]
     Indication: PRODUCT USED FOR UNKNOWN INDICATION
     Route: 048
  2. AMLODIPINE [Suspect]
     Active Substance: AMLODIPINE BESYLATE
     Indication: PRODUCT USED FOR UNKNOWN INDICATION
     Route: 048
  3. METOPROLOL. [Suspect]
     Active Substance: METOPROLOL
     Indication: PRODUCT USED FOR UNKNOWN INDICATION
     Route: 048
  4. TRAZODONE [Concomitant]
     Active Substance: TRAZODONE HYDROCHLORIDE
     Indication: PRODUCT USED FOR UNKNOWN INDICATION
     Route: 048

REACTIONS (13)
  - Intentional overdose [Recovering/Resolving]
  - Mental status changes [Unknown]
  - Gait disturbance [Recovered/Resolved]
  - Cardiac arrest [Recovering/Resolving]
  - Pulse absent [Recovering/Resolving]
  - Suicide attempt [Unknown]
  - Bradycardia [Recovering/Resolving]
  - Electrocardiogram QT prolonged [Recovering/Resolving]
  - Dysarthria [Recovered/Resolved]
  - Lethargy [Recovered/Resolved]
  - Hypotension [Recovering/Resolving]
  - Atrioventricular block first degree [Recovering/Resolving]
  - Circulatory collapse [Recovering/Resolving]
